FAERS Safety Report 6120972-7 (Version None)
Quarter: 2009Q1

REPORT INFORMATION
  Report Type: 
  Country: None (occurrence: None)
  Receive Date: 20090317
  Receipt Date: 20090304
  Transmission Date: 20090719
  Serious: Yes (Other)
  Sender: FDA-Public Use
  Company Number: GB-ELI_LILLY_AND_COMPANY-GB200601000544

PATIENT
  Sex: Female
  Weight: 28 kg

DRUGS (2)
  1. STRATTERA [Suspect]
     Indication: ANGER
     Dosage: 35 MG, UNKNOWN
     Route: 048
     Dates: start: 20051128, end: 20060113
  2. MELATONIN [Concomitant]
     Indication: SLEEP DISORDER
     Dosage: UNK, UNKNOWN
     Route: 065

REACTIONS (4)
  - BREAST ENLARGEMENT [None]
  - DEPRESSION [None]
  - FATIGUE [None]
  - RASH PRURITIC [None]
